FAERS Safety Report 8550101-1 (Version None)
Quarter: 2012Q3

REPORT INFORMATION
  Report Type: 
  Country: None (occurrence: None)
  Receive Date: 20120730
  Receipt Date: 20080419
  Transmission Date: 20120928
  Serious: Yes (Other)
  Sender: FDA-Public Use
  Company Number: CO-PFIZER INC-2012179752

PATIENT
  Age: 67 Year
  Sex: Female

DRUGS (8)
  1. OLMESARTAN MEDOXOMIL AND HYDROCHLOROTHIZIDE [Suspect]
     Indication: HYPERTENSION
     Dosage: 20/12.5 MG, 1X/DAY
  2. ACETYLSALICYLIC ACID [Concomitant]
     Dosage: 100 MG, 1X/DAY
  3. LIPITOR [Suspect]
     Indication: DYSLIPIDAEMIA
     Dosage: 10 MG, 1X/DAY
  4. NIFEDIPINE [Concomitant]
     Dosage: 30 MG, 1X/DAY
  5. AMLODIPINE [Concomitant]
     Dosage: 5 MG, 1X/DAY
  6. METOPROLOL TARTRATE [Concomitant]
     Dosage: 50 MG, 2X/DAY
  7. ACETAMINOPHEN [Concomitant]
     Dosage: 500 MG, 4X/DAY
  8. LOSARTAN [Concomitant]
     Dosage: 100 MG, 2X/DAY

REACTIONS (4)
  - HYPERTENSIVE EMERGENCY [None]
  - CARDIAC DISORDER [None]
  - MUSCULOSKELETAL PAIN [None]
  - TOBACCO ABUSE [None]
